FAERS Safety Report 13877176 (Version 2)
Quarter: 2017Q3

REPORT INFORMATION
  Report Type: Spontaneous
  Country: CN (occurrence: CN)
  Receive Date: 20170817
  Receipt Date: 20170907
  Transmission Date: 20171127
  Serious: No
  Sender: FDA-Public Use
  Company Number: CN-009507513-1708CHN007324

PATIENT
  Age: 68 Year
  Sex: Female
  Weight: 47.98 kg

DRUGS (18)
  1. CISPLATIN. [Concomitant]
     Active Substance: CISPLATIN
     Indication: CHEMOTHERAPY
     Dosage: 30 MG, CYCLE 1
     Route: 041
     Dates: start: 20141117, end: 20141117
  2. OMEPRAZOLE. [Concomitant]
     Active Substance: OMEPRAZOLE
     Dosage: 40 MG, QD
     Route: 041
     Dates: start: 20141122, end: 20141122
  3. EMEND [Suspect]
     Active Substance: APREPITANT
     Dosage: 80 MG, DAY 2
     Route: 048
     Dates: start: 20141116, end: 20141116
  4. DEXAMETHASONE. [Concomitant]
     Active Substance: DEXAMETHASONE
     Dosage: 3.75 MG, QD
     Route: 048
     Dates: start: 20141116, end: 20141118
  5. GLUTATHIONE [Concomitant]
     Active Substance: GLUTATHIONE
     Dosage: 1.8 G, QD
     Route: 042
     Dates: start: 20141122, end: 20141122
  6. TROPISETRON HYDROCHLORIDE [Concomitant]
     Active Substance: TROPISETRON HYDROCHLORIDE
     Indication: PROPHYLAXIS OF NAUSEA AND VOMITING
     Dosage: 5 MG, QD
     Route: 041
     Dates: start: 20141115, end: 20141117
  7. LEVOCARNITINE. [Concomitant]
     Active Substance: LEVOCARNITINE
     Indication: CARDIOVASCULAR EVENT PROPHYLAXIS
     Dosage: 3 G, QD
     Route: 041
     Dates: start: 20141115, end: 20141117
  8. LEVOCARNITINE. [Concomitant]
     Active Substance: LEVOCARNITINE
     Dosage: 3 G, QD
     Route: 041
     Dates: start: 20141122, end: 20141122
  9. VINORELBINE TARTRATE. [Concomitant]
     Active Substance: VINORELBINE TARTRATE
     Indication: CHEMOTHERAPY
     Dosage: 40 MG/D1
     Route: 041
     Dates: start: 20141115, end: 20141115
  10. VINORELBINE TARTRATE. [Concomitant]
     Active Substance: VINORELBINE TARTRATE
     Dosage: 40 MG/D8
     Route: 041
     Dates: start: 20141122, end: 20141122
  11. MANNITOL. [Concomitant]
     Active Substance: MANNITOL
     Indication: POLYURIA
     Dosage: 50 G, QD
     Route: 042
     Dates: start: 20141115, end: 20141117
  12. GLUTATHIONE [Concomitant]
     Active Substance: GLUTATHIONE
     Indication: PROPHYLAXIS
     Dosage: 1.8 G, QD
     Route: 042
     Dates: start: 20141115, end: 20141117
  13. VITAMINS (UNSPECIFIED) [Concomitant]
     Active Substance: VITAMINS
     Indication: VITAMIN SUPPLEMENTATION
     Dosage: 1 DF, QD
     Route: 041
     Dates: start: 20141115, end: 20141117
  14. TROPISETRON HYDROCHLORIDE [Concomitant]
     Active Substance: TROPISETRON HYDROCHLORIDE
     Dosage: 5 MG, QD
     Route: 041
     Dates: start: 20141122, end: 20141122
  15. EMEND [Suspect]
     Active Substance: APREPITANT
     Indication: PROPHYLAXIS OF NAUSEA AND VOMITING
     Dosage: 125 MG, DAY 1
     Route: 048
     Dates: start: 20141115, end: 20141115
  16. EMEND [Suspect]
     Active Substance: APREPITANT
     Dosage: 80 MG, DAY 3
     Route: 048
     Dates: start: 20141117, end: 20141117
  17. DEXAMETHASONE. [Concomitant]
     Active Substance: DEXAMETHASONE
     Indication: ANTIEMETIC SUPPORTIVE CARE
     Dosage: 6 MG, ONCE
     Route: 048
     Dates: start: 20141115, end: 20141115
  18. OMEPRAZOLE. [Concomitant]
     Active Substance: OMEPRAZOLE
     Indication: PROPHYLAXIS
     Dosage: 40 MG, QD
     Route: 041
     Dates: start: 20141115, end: 20141117

REACTIONS (6)
  - Alanine aminotransferase increased [Recovered/Resolved]
  - Malnutrition [Unknown]
  - Blood sodium decreased [Recovered/Resolved]
  - Blood chloride decreased [Recovered/Resolved]
  - Blood potassium decreased [Recovered/Resolved]
  - White blood cell count decreased [Recovered/Resolved]

NARRATIVE: CASE EVENT DATE: 2014
